FAERS Safety Report 6784538-8 (Version None)
Quarter: 2010Q2

REPORT INFORMATION
  Report Type: 
  Country: None (occurrence: None)
  Receive Date: 20100622
  Receipt Date: 20100615
  Transmission Date: 20101027
  Serious: Yes (Other)
  Sender: FDA-Public Use
  Company Number: JP-BRISTOL-MYERS SQUIBB COMPANY-15156631

PATIENT
  Age: 69 Year
  Sex: Male

DRUGS (3)
  1. PACLITAXEL [Suspect]
     Indication: GASTRIC CANCER
     Route: 041
  2. TS-1 [Suspect]
     Indication: GASTRIC CANCER
     Route: 048
  3. ASPIRIN [Concomitant]
     Indication: ANTIPLATELET THERAPY
     Route: 048

REACTIONS (1)
  - ARTERIAL THROMBOSIS [None]
